FAERS Safety Report 21612528 (Version 1)
Quarter: 2022Q4

REPORT INFORMATION
  Report Type: Spontaneous
  Country: IT (occurrence: None)
  Receive Date: 20221118
  Receipt Date: 20221118
  Transmission Date: 20230113
  Serious: Yes (Other)
  Sender: FDA-Public Use
  Company Number: None

PATIENT
  Age: 64 Year
  Sex: Female
  Weight: 69 kg

DRUGS (6)
  1. CARBOPLATIN [Suspect]
     Active Substance: CARBOPLATIN
     Indication: Breast neoplasm
     Dosage: UNKNOWN
     Route: 042
     Dates: start: 202210, end: 20221021
  2. PACLITAXEL [Suspect]
     Active Substance: PACLITAXEL
     Indication: Breast neoplasm
     Dosage: UNKNOWN
     Route: 042
     Dates: start: 202210, end: 20221021
  3. DEXAMETHASONE [Concomitant]
     Active Substance: DEXAMETHASONE
     Indication: Hypercalcaemia of malignancy
     Route: 042
     Dates: start: 202210, end: 20221021
  4. FAMOTIDINA [Concomitant]
     Indication: Ulcer
     Dosage: UNKNOWN
     Route: 048
     Dates: start: 202210, end: 20221021
  5. ONDANSETRON [Concomitant]
     Active Substance: ONDANSETRON
     Indication: Nausea
     Route: 042
     Dates: start: 202210, end: 20221021
  6. TRIMETON [Concomitant]
     Active Substance: CHLORPHENIRAMINE MALEATE
     Indication: Vomiting
     Dosage: UNKNOWN
     Route: 042
     Dates: start: 202210, end: 20221021

REACTIONS (12)
  - Nausea [Recovering/Resolving]
  - Paraesthesia [Recovering/Resolving]
  - Oral discomfort [Recovering/Resolving]
  - Decreased appetite [Recovering/Resolving]
  - Parosmia [Recovering/Resolving]
  - Drug hypersensitivity [Recovering/Resolving]
  - Pruritus [Recovering/Resolving]
  - Vertigo [Recovering/Resolving]
  - Asthenia [Recovering/Resolving]
  - Dry skin [Recovering/Resolving]
  - Dysgeusia [Recovering/Resolving]
  - Cyanosis [Recovering/Resolving]

NARRATIVE: CASE EVENT DATE: 20220101
